FAERS Safety Report 8501081-6 (Version None)
Quarter: 2012Q3

REPORT INFORMATION
  Report Type: 
  Country: None (occurrence: None)
  Receive Date: 20120710
  Receipt Date: 20120702
  Transmission Date: 20120928
  Serious: No
  Sender: FDA-Public Use
  Company Number: US-B.I. PHARMACEUTICALS,INC./RIDGEFIELD-2012-BP-14886BP

PATIENT
  Age: 84 Year
  Sex: Female

DRUGS (4)
  1. LOVASTATIN [Concomitant]
     Indication: BLOOD CHOLESTEROL INCREASED
  2. DEXILANT [Suspect]
     Indication: DYSPEPSIA
     Route: 048
     Dates: start: 20120501
  3. AGGRENOX [Suspect]
     Indication: TRANSIENT ISCHAEMIC ATTACK
     Route: 048
     Dates: start: 20120401
  4. ATENOLOL [Concomitant]
     Indication: CARDIAC DISORDER

REACTIONS (6)
  - DYSPEPSIA [None]
  - DRY MOUTH [None]
  - ERUCTATION [None]
  - CHEST PAIN [None]
  - ABDOMINAL PAIN UPPER [None]
  - CHROMATURIA [None]
